FAERS Safety Report 22150123 (Version 1)
Quarter: 2023Q1

REPORT INFORMATION
  Report Type: Report from Study
  Country: CL (occurrence: CL)
  Receive Date: 20230329
  Receipt Date: 20230329
  Transmission Date: 20230418
  Serious: Yes (Hospitalization, Other)
  Sender: FDA-Public Use
  Company Number: CL-ABBVIE-4706730

PATIENT
  Sex: Female

DRUGS (5)
  1. HUMIRA [Suspect]
     Active Substance: ADALIMUMAB
     Indication: Rheumatoid arthritis
     Route: 058
     Dates: start: 20120912, end: 20230312
  2. CELEBRA [Concomitant]
     Active Substance: CELECOXIB
     Indication: Product used for unknown indication
  3. PREDNISONE [Concomitant]
     Active Substance: PREDNISONE
     Indication: Product used for unknown indication
  4. LORATADINE [Concomitant]
     Active Substance: LORATADINE
     Indication: Product used for unknown indication
  5. CALCIUM [Concomitant]
     Active Substance: CALCIUM
     Indication: Product used for unknown indication

REACTIONS (7)
  - Pharyngeal pustule [Recovering/Resolving]
  - Musculoskeletal disorder [Unknown]
  - Nervous system disorder [Unknown]
  - Procedural complication [Unknown]
  - Surgery [Unknown]
  - Coma [Unknown]
  - Surgery [Unknown]

NARRATIVE: CASE EVENT DATE: 20230101
